FAERS Safety Report 7016195-X (Version None)
Quarter: 2010Q3

REPORT INFORMATION
  Report Type: 
  Country: None (occurrence: None)
  Receive Date: 20100927
  Receipt Date: 20090902
  Transmission Date: 20110219
  Serious: No
  Sender: FDA-Public Use
  Company Number: US-ASTRAZENECA-2009SE11385

PATIENT
  Age: 65 Year
  Sex: Female
  Weight: 94.3 kg

DRUGS (1)
  1. ARIMIDEX [Suspect]
     Route: 048
     Dates: start: 20090301

REACTIONS (3)
  - ARTHRITIS [None]
  - DRY THROAT [None]
  - OROPHARYNGEAL PAIN [None]
